FAERS Safety Report 21407716 (Version 1)
Quarter: 2022Q4

REPORT INFORMATION
  Report Type: Spontaneous
  Country: CA (occurrence: CA)
  Receive Date: 20221004
  Receipt Date: 20221004
  Transmission Date: 20230112
  Serious: Yes (Hospitalization)
  Sender: FDA-Public Use
  Company Number: CA-PFIZER INC-202201200675

PATIENT
  Age: 55 Year
  Sex: Female

DRUGS (2)
  1. PAXLOVID [Suspect]
     Active Substance: NIRMATRELVIR\RITONAVIR
     Indication: COVID-19 treatment
     Dates: start: 20220920, end: 20220924
  2. RINVOQ [Concomitant]
     Active Substance: UPADACITINIB
     Dates: start: 202204

REACTIONS (4)
  - Rash [Not Recovered/Not Resolved]
  - Diverticulum [Not Recovered/Not Resolved]
  - Blood urine present [Not Recovered/Not Resolved]
  - Protein urine present [Not Recovered/Not Resolved]
